FAERS Safety Report 5314170-4 (Version None)
Quarter: 2007Q2

REPORT INFORMATION
  Report Type: 
  Country: None (occurrence: None)
  Receive Date: 20070424
  Receipt Date: 20070412
  Transmission Date: 20071010
  Serious: Yes (Other)
  Sender: FDA-Public Use
  Company Number: 230009K07AUS

PATIENT
  Age: 50 Year
  Sex: Female
  Weight: 127 kg

DRUGS (5)
  1. REBIF [Suspect]
     Indication: MULTIPLE SCLEROSIS
     Dosage: 44 MCG, 3 IN 1 WEEKS, SUBCUTANEOUS
     Route: 058
     Dates: start: 20040213
  2. OXYBUTYNIN CHLORIDE [Concomitant]
  3. VENLAFAXINE HCL [Concomitant]
  4. TEGRETOL [Concomitant]
  5. ZOLPIDEM [Concomitant]

REACTIONS (1)
  - LARYNGEAL CANCER [None]
